FAERS Safety Report 16108805 (Version 4)
Quarter: 2019Q2

REPORT INFORMATION
  Report Type: Report from Study
  Country: US (occurrence: US)
  Receive Date: 20190323
  Receipt Date: 20190520
  Transmission Date: 20190711
  Serious: Yes (Death, Disabling)
  Sender: FDA-Public Use
  Company Number: PHEH2019US012538

PATIENT
  Sex: Male
  Weight: 107 kg

DRUGS (1)
  1. GLEEVEC [Suspect]
     Active Substance: IMATINIB MESYLATE
     Indication: CHRONIC MYELOID LEUKAEMIA
     Dosage: 400 MG, QD (1 DF, ONCE DAILY)
     Route: 048
     Dates: start: 200106, end: 20161229

REACTIONS (2)
  - Renal failure [Fatal]
  - Diabetic complication [Fatal]
